FAERS Safety Report 24874130 (Version 1)
Quarter: 2025Q1

REPORT INFORMATION
  Report Type: Spontaneous
  Country: QA (occurrence: None)
  Receive Date: 20250122
  Receipt Date: 20250122
  Transmission Date: 20250409
  Serious: Yes (Hospitalization)
  Sender: ENCUBE ETHICALS
  Company Number: QA-Encube-001620

PATIENT
  Age: 71 Year
  Sex: Female

DRUGS (1)
  1. HYDROCORTISONE [Suspect]
     Active Substance: HYDROCORTISONE
     Indication: Adrenal insufficiency

REACTIONS (3)
  - Acute myocardial infarction [Recovering/Resolving]
  - Off label use [Unknown]
  - Acute pulmonary oedema [Recovering/Resolving]
